FAERS Safety Report 5254598-4 (Version None)
Quarter: 2007Q1

REPORT INFORMATION
  Report Type: 
  Country: None (occurrence: None)
  Receive Date: 20070302
  Receipt Date: 20070221
  Transmission Date: 20070707
  Serious: Yes (Other)
  Sender: FDA-Public Use
  Company Number: CO-PFIZER INC-2007014179

PATIENT
  Sex: Male

DRUGS (7)
  1. XANAX [Suspect]
     Indication: DEPRESSION
     Route: 048
     Dates: start: 20070216, end: 20070219
  2. MICARDIS HCT [Concomitant]
  3. FUROSEMIDE [Concomitant]
  4. HUMALOG [Concomitant]
  5. PAROXETINE HCL [Concomitant]
  6. WARFARIN SODIUM [Concomitant]
  7. CARVEDILOL [Concomitant]

REACTIONS (3)
  - DISORIENTATION [None]
  - LOSS OF CONSCIOUSNESS [None]
  - SYNCOPE [None]
